FAERS Safety Report 5268697-4 (Version None)
Quarter: 2007Q1

REPORT INFORMATION
  Report Type: 
  Country: None (occurrence: None)
  Receive Date: 20061213
  Receipt Date: 20040903
  Transmission Date: 20070707
  Serious: Yes (Other)
  Sender: FDA-Public Use
  Company Number: 2004UW18680

PATIENT
  Age: 49 Year
  Sex: Female
  Weight: 49.8957 kg

DRUGS (2)
  1. IRESSA [Suspect]
     Indication: NEOPLASM MALIGNANT
     Dosage: 250 MG PO
     Route: 048
  2. PRAVACHOL [Concomitant]

REACTIONS (3)
  - ALOPECIA [None]
  - DERMATITIS ACNEIFORM [None]
  - HYPOTRICHOSIS [None]
